FAERS Safety Report 12291069 (Version 1)
Quarter: 2016Q2

REPORT INFORMATION
  Report Type: Spontaneous
  Country: US (occurrence: US)
  Receive Date: 20160421
  Receipt Date: 20160421
  Transmission Date: 20160815
  Serious: Yes (Hospitalization)
  Sender: FDA-Public Use
  Company Number: US-ROCHE-1745397

PATIENT
  Age: 44 Year
  Sex: Female
  Weight: 70.82 kg

DRUGS (6)
  1. ADVIL [Concomitant]
     Active Substance: IBUPROFEN
  2. XOLAIR [Suspect]
     Active Substance: OMALIZUMAB
     Route: 058
     Dates: start: 20150924, end: 20160119
  3. IBUPROFEN. [Concomitant]
     Active Substance: IBUPROFEN
  4. BENADRYL [Concomitant]
     Active Substance: DIPHENHYDRAMINE HYDROCHLORIDE
  5. ZYRTEC [Concomitant]
     Active Substance: CETIRIZINE HYDROCHLORIDE
     Route: 065
  6. XOLAIR [Suspect]
     Active Substance: OMALIZUMAB
     Indication: ASTHMA
     Route: 058
     Dates: start: 20150916, end: 20151014

REACTIONS (8)
  - Hemiparesis [Unknown]
  - Myalgia [Unknown]
  - Myalgia [Unknown]
  - Pain [Unknown]
  - Pyrexia [Unknown]
  - Fatigue [Unknown]
  - Fatigue [Unknown]
  - Paraesthesia [Unknown]

NARRATIVE: CASE EVENT DATE: 20150928
